FAERS Safety Report 16077525 (Version 1)
Quarter: 2019Q1

REPORT INFORMATION
  Report Type: Spontaneous
  Country: US (occurrence: US)
  Receive Date: 20190315
  Receipt Date: 20190315
  Transmission Date: 20190418
  Serious: Yes (Hospitalization)
  Sender: FDA-Public Use
  Company Number: US-JNJFOC-20190314420

PATIENT
  Age: 60 Year
  Sex: Male
  Weight: 78.02 kg

DRUGS (1)
  1. INVOKANA [Suspect]
     Active Substance: CANAGLIFLOZIN
     Indication: PRODUCT USED FOR UNKNOWN INDICATION
     Route: 048
     Dates: end: 201803

REACTIONS (5)
  - Gangrene [Unknown]
  - Osteomyelitis [Unknown]
  - Toe amputation [Unknown]
  - Skin ulcer [Unknown]
  - Cellulitis [Unknown]

NARRATIVE: CASE EVENT DATE: 201508
